FAERS Safety Report 9078851 (Version 1)
Quarter: 2013Q1

REPORT INFORMATION
  Report Type: Spontaneous
  Country: IT (occurrence: IT)
  Receive Date: 20130130
  Receipt Date: 20130130
  Transmission Date: 20140127
  Serious: Yes (Other)
  Sender: FDA-Public Use
  Company Number: IT-MERCK-1301ITA010772

PATIENT
  Age: 42 Year
  Sex: Male

DRUGS (2)
  1. IMIPENEM (+) CILASTATIN SODIUM [Suspect]
     Indication: CYSTIC FIBROSIS
     Dosage: 750 MG, QID
     Route: 042
     Dates: start: 20130112, end: 20130112
  2. TAZOCIN [Concomitant]
     Dosage: UNK
     Dates: start: 20130112, end: 20130112

REACTIONS (2)
  - Nausea [Recovered/Resolved]
  - Feeling cold [Recovered/Resolved]
